FAERS Safety Report 6832017-1 (Version None)
Quarter: 2010Q3

REPORT INFORMATION
  Report Type: 
  Country: None (occurrence: None)
  Receive Date: 20100712
  Receipt Date: 20100629
  Transmission Date: 20110219
  Serious: Yes (Hospitalization)
  Sender: FDA-Public Use
  Company Number: SE-NOVOPROD-310905

PATIENT
  Age: 62 Year
  Sex: Female

DRUGS (8)
  1. INSULATARD FLEXPEN [Suspect]
     Indication: DIABETES MELLITUS
     Dates: start: 20091204, end: 20100322
  2. OXIS TURBOHALER [Concomitant]
     Dosage: 4,5 MIKRO G/DOS
  3. SYMBICORT FORTE [Concomitant]
     Dosage: 320 MIKROGRAM/9 MIKROGR
  4. SPIRIVA [Concomitant]
     Dosage: CAPSULE 18 MIKRO GR.
  5. COZAAR [Concomitant]
     Dosage: 50 MG
  6. EMCONCOR                           /00802601/ [Concomitant]
     Dosage: 5 MG
  7. TROMBYL [Concomitant]
     Dosage: 75 MG
  8. BRICANYL [Concomitant]
     Dosage: 0,25 MG

REACTIONS (5)
  - ABDOMINAL DISTENSION [None]
  - DYSPNOEA [None]
  - NEPHROTIC SYNDROME [None]
  - OEDEMA PERIPHERAL [None]
  - VASCULITIS [None]
